FAERS Safety Report 8310535-7 (Version None)
Quarter: 2012Q2

REPORT INFORMATION
  Report Type: 
  Country: None (occurrence: None)
  Receive Date: 20120425
  Receipt Date: 20120417
  Transmission Date: 20120825
  Serious: Yes (Other)
  Sender: FDA-Public Use
  Company Number: US-JNJFOC-20120409772

PATIENT
  Sex: Male

DRUGS (1)
  1. KETOCONAZOLE [Suspect]
     Indication: PROSTATE CANCER METASTATIC
     Route: 065

REACTIONS (2)
  - OFF LABEL USE [None]
  - THROMBOCYTOPENIA [None]
